FAERS Safety Report 23775692 (Version 1)
Quarter: 2024Q2

REPORT INFORMATION
  Report Type: Report from Study
  Country: US (occurrence: US)
  Receive Date: 20240423
  Receipt Date: 20240423
  Transmission Date: 20240715
  Serious: Yes (Hospitalization, Other)
  Sender: FDA-Public Use
  Company Number: US-ABBVIE-5726287

PATIENT
  Sex: Female

DRUGS (1)
  1. HUMIRA [Suspect]
     Active Substance: ADALIMUMAB
     Indication: Rheumatoid arthritis
     Route: 058
     Dates: start: 20231003

REACTIONS (5)
  - Pneumonia [Not Recovered/Not Resolved]
  - Decreased appetite [Recovering/Resolving]
  - Cough [Unknown]
  - Respiratory arrest [Unknown]
  - Oxygen saturation decreased [Unknown]
